FAERS Safety Report 5350519-4 (Version None)
Quarter: 2007Q2

REPORT INFORMATION
  Report Type: 
  Country: None (occurrence: None)
  Receive Date: 20070606
  Receipt Date: 20070606
  Transmission Date: 20071010
  Serious: Yes (Hospitalization)
  Sender: FDA-Public Use
  Company Number: None

PATIENT
  Sex: Male

DRUGS (8)
  1. CETUXIMAB [Suspect]
     Indication: PANCREATIC CARCINOMA
     Dosage: 736MG IV
     Route: 042
     Dates: start: 20070517
  2. GEMCITABINE [Suspect]
     Indication: PANCREATIC CARCINOMA
     Dosage: 1840MG IV
     Route: 042
     Dates: start: 20070517
  3. OXALIPLATIN [Suspect]
     Indication: PANCREATIC CARCINOMA
     Dosage: 184MG IV
     Route: 042
     Dates: start: 20070518
  4. COUMADIN [Concomitant]
  5. PROTONIX [Concomitant]
  6. COLACE [Concomitant]
  7. PERCOCET [Concomitant]
  8. OXYCODONE HCL [Concomitant]

REACTIONS (4)
  - BACTERAEMIA [None]
  - BILE DUCT OBSTRUCTION [None]
  - CHOLANGITIS [None]
  - MEDICAL DEVICE COMPLICATION [None]
